FAERS Safety Report 7804839-1 (Version None)
Quarter: 2011Q4

REPORT INFORMATION
  Report Type: 
  Country: None (occurrence: None)
  Receive Date: 20111010
  Receipt Date: 20111003
  Transmission Date: 20120403
  Serious: Yes (Hospitalization)
  Sender: FDA-Public Use
  Company Number: NL-TEVA-304122ISR

PATIENT
  Age: 27 Year
  Sex: Female

DRUGS (1)
  1. DESMOPRESSIN [Suspect]
     Indication: ENURESIS
     Dosage: .2 MILLIGRAM;
     Route: 048

REACTIONS (4)
  - ARTERIAL THROMBOSIS [None]
  - GALLBLADDER DISORDER [None]
  - INTESTINAL ISCHAEMIA [None]
  - OVERDOSE [None]
